FAERS Safety Report 7337822-3 (Version None)
Quarter: 2011Q1

REPORT INFORMATION
  Report Type: 
  Country: None (occurrence: None)
  Receive Date: 20110308
  Receipt Date: 20110228
  Transmission Date: 20110831
  Serious: Yes (Hospitalization)
  Sender: FDA-Public Use
  Company Number: GB-ROCHE-750743

PATIENT
  Sex: Female
  Weight: 66.9 kg

DRUGS (10)
  1. DOCETAXEL [Suspect]
     Indication: BREAST CANCER
     Route: 065
     Dates: start: 20101209
  2. LISINOPRIL [Concomitant]
     Indication: HYPERTENSION
     Route: 048
  3. BEVACIZUMAB [Suspect]
     Indication: BREAST CANCER
     Dosage: CYCLE 2
     Route: 065
     Dates: start: 20101209
  4. ATENOLOL [Concomitant]
     Indication: HYPERTENSION
     Route: 048
  5. FLUOROURACIL [Suspect]
     Indication: BREAST CANCER
     Route: 065
     Dates: start: 20110120
  6. BEVACIZUMAB [Suspect]
     Dosage: CYCLE 4
     Route: 065
     Dates: start: 20110120
  7. BENDROFLUMETHIAZID [Concomitant]
     Indication: HYPERTENSION
     Route: 048
  8. EPIRUBICIN [Suspect]
     Indication: BREAST CANCER
     Route: 065
     Dates: start: 20110120
  9. CYCLOPHOSPHAMIDE [Suspect]
     Indication: BREAST CANCER
     Route: 065
     Dates: start: 20110120
  10. SIMVASTATIN [Concomitant]
     Route: 048

REACTIONS (5)
  - PYREXIA [None]
  - OESOPHAGITIS [None]
  - NEUTROPENIA [None]
  - NEUTROPENIC SEPSIS [None]
  - COUGH [None]
